FAERS Safety Report 19938342 (Version 1)
Quarter: 2021Q4

REPORT INFORMATION
  Report Type: Spontaneous
  Country: ES (occurrence: ES)
  Receive Date: 20211011
  Receipt Date: 20211011
  Transmission Date: 20220303
  Serious: Yes (Other)
  Sender: FDA-Public Use
  Company Number: None

PATIENT
  Age: 74 Year
  Sex: Male

DRUGS (13)
  1. RAMIPRIL [Suspect]
     Active Substance: RAMIPRIL
     Indication: Cardiac failure
     Dosage: 2.5 MG C/24 H
     Route: 048
     Dates: start: 20210711, end: 20210714
  2. SACUBITRIL\VALSARTAN [Suspect]
     Active Substance: SACUBITRIL\VALSARTAN
     Indication: Cardiac failure
     Dosage: 24.0 MG C/12 H,  24 MG/26 MG, 28 TABLETS
     Route: 048
     Dates: start: 20210601, end: 20210917
  3. MIRTAZAPINE [Concomitant]
     Active Substance: MIRTAZAPINE
     Indication: Persistent depressive disorder
     Dosage: 30.0 MG C/24 H NIGHT, 30 TABLETS
     Route: 048
     Dates: start: 20160608
  4. ELIQUIS [Concomitant]
     Active Substance: APIXABAN
     Indication: Atrial fibrillation
     Dosage: 5.0 MG C/12 H, 60 TABLETS
     Route: 048
     Dates: start: 20210224
  5. PANTOPRAZOL RATIO [Concomitant]
     Indication: Dyspepsia
     Dosage: 20.0 MG OF, 56 TABLETS
     Route: 048
     Dates: start: 20160219
  6. FUROSEMIDE KERN PHARMA [Concomitant]
     Indication: Cardiac failure
     Dosage: 40.0 MG OF, EFG, 30 TABLETS
     Route: 048
     Dates: start: 20201211
  7. BISOPROLOL FUMARATE [Concomitant]
     Active Substance: BISOPROLOL FUMARATE
     Indication: Atrial fibrillation
     Dosage: 5.0 MG DECE, EFG, 60 TABLETS
     Route: 048
     Dates: start: 20201201
  8. QUETIAPINE FUMARATE [Concomitant]
     Active Substance: QUETIAPINE FUMARATE
     Indication: Persistent depressive disorder
     Dosage: 100.0 MG CE, EFG, 60 TABLETS
     Route: 048
     Dates: start: 20180719
  9. EPLERENONE NORMON [Concomitant]
     Indication: Cardiomyopathy acute
     Dosage: 25.0 MG CO, EFG, 30 TABLETS
     Route: 048
     Dates: start: 20201212
  10. DIGOXIN TEOFARMA [Concomitant]
     Indication: Atrial fibrillation
     Dosage: 0.25 MG C/24 H - J Y D, 50 TABLETS
     Route: 048
     Dates: start: 20210119
  11. LORMETAZEPAM [Concomitant]
     Active Substance: LORMETAZEPAM
     Indication: Insomnia
     Dosage: 1.0 MG C/24 H NOC,  EFG , 30 TABLETS
     Route: 048
     Dates: start: 20180314
  12. ROSUVASTATIN NORMON [Concomitant]
     Indication: Product used for unknown indication
     Dosage: 20.0 MG CE, EFG, 28 TABLETS
     Route: 048
     Dates: start: 20210526
  13. DULOXETINE [Concomitant]
     Active Substance: DULOXETINE
     Indication: Persistent depressive disorder
     Dosage: 60.0 MG DECO, EFG, 56 CAPSULES
     Route: 048
     Dates: start: 20150804

REACTIONS (4)
  - Medication error [Unknown]
  - Product dispensing error [Unknown]
  - Product preparation issue [Unknown]
  - Hypotension [Recovering/Resolving]

NARRATIVE: CASE EVENT DATE: 20210714
